FAERS Safety Report 20450881 (Version 1)
Quarter: 2022Q1

REPORT INFORMATION
  Report Type: Spontaneous
  Country: US (occurrence: None)
  Receive Date: 20220209
  Receipt Date: 20220209
  Transmission Date: 20220424
  Serious: No
  Sender: FDA-Public Use
  Company Number: None

PATIENT
  Sex: Male

DRUGS (1)
  1. HEPARIN LOCK FLUSH [Suspect]
     Active Substance: HEPARIN SODIUM
     Indication: Bacteraemia
     Dosage: 100U/5ML EVERY DAY INTRAVENOUS
     Route: 042
     Dates: start: 20220121

REACTIONS (1)
  - Swelling [None]
